FAERS Safety Report 6609481-6 (Version None)
Quarter: 2010Q1

REPORT INFORMATION
  Report Type: 
  Country: None (occurrence: None)
  Receive Date: 20100302
  Receipt Date: 20100218
  Transmission Date: 20100710
  Serious: Yes (Other)
  Sender: FDA-Public Use
  Company Number: US-JNJFOC-20100209331

PATIENT
  Sex: Female
  Weight: 81.65 kg

DRUGS (3)
  1. EXTRA STRENGTH TYLENOL [Suspect]
     Indication: PAIN
  2. EXTRA STRENGTH TYLENOL [Suspect]
     Indication: HEADACHE
  3. EXTRA STRENGTH TYLENOL [Suspect]
     Indication: DYSMENORRHOEA

REACTIONS (4)
  - CHEST PAIN [None]
  - DIARRHOEA [None]
  - NAUSEA [None]
  - PRODUCT QUALITY ISSUE [None]
